FAERS Safety Report 20102281 (Version 7)
Quarter: 2022Q2

REPORT INFORMATION
  Report Type: Report from Study
  Country: SI (occurrence: SI)
  Receive Date: 20211123
  Receipt Date: 20220512
  Transmission Date: 20220720
  Serious: Yes (Other)
  Sender: FDA-Public Use
  Company Number: SI-BAYER-2021A252519

PATIENT
  Age: 51 Year
  Sex: Male

DRUGS (2)
  1. STIVARGA [Suspect]
     Active Substance: REGORAFENIB
     Indication: Chondrosarcoma
     Dosage: DAILY DOSE 160 MG
     Dates: start: 20211109
  2. STIVARGA [Suspect]
     Active Substance: REGORAFENIB
     Indication: Chondrosarcoma
     Dosage: 120 MG, QD

REACTIONS (18)
  - Constipation [Recovering/Resolving]
  - Hypertension [Recovering/Resolving]
  - Musculoskeletal chest pain [Recovering/Resolving]
  - Rash [Recovered/Resolved]
  - Decreased appetite [Recovering/Resolving]
  - Oropharyngeal pain [Not Recovered/Not Resolved]
  - Skin reaction [Recovering/Resolving]
  - Blister [Recovered/Resolved]
  - Off label use [None]
  - Mucosal inflammation [Recovering/Resolving]
  - Rash [Recovering/Resolving]
  - Blister [Not Recovered/Not Resolved]
  - C-reactive protein increased [Recovering/Resolving]
  - Blood phosphorus decreased [Not Recovered/Not Resolved]
  - Pruritus [Not Recovered/Not Resolved]
  - Diarrhoea [Recovered/Resolved]
  - Pruritus [Not Recovered/Not Resolved]
  - Rash [Not Recovered/Not Resolved]

NARRATIVE: CASE EVENT DATE: 20211101
